FAERS Safety Report 9831001 (Version 1)
Quarter: 2014Q1

REPORT INFORMATION
  Report Type: Report from Study
  Country: NL (occurrence: NL)
  Receive Date: 20140120
  Receipt Date: 20140120
  Transmission Date: 20141002
  Serious: Yes (Death)
  Sender: FDA-Public Use
  Company Number: PHHY2014NL005733

PATIENT
  Age: 68 Year
  Sex: Male

DRUGS (4)
  1. ZOMETA [Suspect]
     Indication: PROSTATE CANCER METASTATIC
     Dosage: 4 MG/100 ML, ONCE PER 3 WEEKS
     Route: 042
  2. ZOMETA [Suspect]
     Dosage: 4 MG/100 ML, ONCE PER 3 WEEKS
     Route: 042
     Dates: start: 20120703
  3. ZOMETA [Suspect]
     Dosage: 4 MG/100 ML, ONCE PER 3 WEEKS
     Route: 042
     Dates: start: 20131212
  4. ZOMETA [Suspect]
     Dosage: 4 MG/100 ML, ONCE PER 3 WEEKS
     Route: 042
     Dates: start: 20131228

REACTIONS (2)
  - Death [Fatal]
  - Inappropriate schedule of drug administration [Unknown]
